FAERS Safety Report 10471262 (Version 1)
Quarter: 2014Q3

REPORT INFORMATION
  Report Type: Report from Study
  Country: US (occurrence: US)
  Receive Date: 20140923
  Receipt Date: 20140923
  Transmission Date: 20150326
  Serious: No
  Sender: FDA-Public Use
  Company Number: US-ALEXION-A201002265

PATIENT
  Age: 16 Year
  Sex: Female

DRUGS (1)
  1. SOLIRIS [Suspect]
     Active Substance: ECULIZUMAB
     Indication: PAROXYSMAL NOCTURNAL HAEMOGLOBINURIA
     Dosage: UNK
     Route: 042

REACTIONS (9)
  - Asthenia [Unknown]
  - Depressive symptom [Unknown]
  - Nausea [Unknown]
  - Central venous catheterisation [Recovered/Resolved]
  - Pharyngitis streptococcal [Unknown]
  - Malaise [Unknown]
  - Fall [Unknown]
  - Hypersensitivity [Unknown]
  - Ligament sprain [Unknown]

NARRATIVE: CASE EVENT DATE: 20100303
